FAERS Safety Report 12099101 (Version 1)
Quarter: 2016Q1

REPORT INFORMATION
  Report Type: Spontaneous
  Country: US (occurrence: US)
  Receive Date: 20160222
  Receipt Date: 20160222
  Transmission Date: 20160526
  Serious: No
  Sender: FDA-Public Use
  Company Number: US-TEVA-608285USA

PATIENT
  Age: 76 Year
  Sex: Male

DRUGS (10)
  1. IPRATROPIUM BROMIDE. [Concomitant]
     Active Substance: IPRATROPIUM BROMIDE
     Dates: start: 2015
  2. SIMVASTATIN. [Concomitant]
     Active Substance: SIMVASTATIN
  3. LOSARTAN. [Concomitant]
     Active Substance: LOSARTAN
     Dates: start: 2014
  4. ALLOPURINOL. [Concomitant]
     Active Substance: ALLOPURINOL
  5. CETIRIZINE W/PSEUDOEPHEDRINE [Suspect]
     Active Substance: CETIRIZINE HYDROCHLORIDE\PSEUDOEPHEDRINE HYDROCHLORIDE
     Indication: PERENNIAL ALLERGY
     Dosage: 1 TABLET PRN
     Route: 048
     Dates: start: 201508
  6. CARVEDILOL. [Concomitant]
     Active Substance: CARVEDILOL
     Dates: start: 2015
  7. CETIRIZINE [Suspect]
     Active Substance: CETIRIZINE HYDROCHLORIDE
     Indication: PERENNIAL ALLERGY
     Dosage: 10 MILLIGRAM DAILY; PRN
     Route: 048
     Dates: start: 201508
  8. TAMSULOSIN [Concomitant]
     Active Substance: TAMSULOSIN
  9. FISH OIL [Concomitant]
     Active Substance: FISH OIL
  10. FLUTICASONE [Concomitant]
     Active Substance: FLUTICASONE\FLUTICASONE PROPIONATE
     Dates: start: 2015

REACTIONS (2)
  - Drug administered to patient of inappropriate age [Unknown]
  - Constipation [Not Recovered/Not Resolved]

NARRATIVE: CASE EVENT DATE: 201508
